FAERS Safety Report 25887251 (Version 2)
Quarter: 2025Q4

REPORT INFORMATION
  Report Type: Spontaneous
  Country: US (occurrence: US)
  Receive Date: 20251006
  Receipt Date: 20251030
  Transmission Date: 20260118
  Serious: No
  Sender: ARDELYX
  Company Number: US-ARDELYX-2025ARDX007397

PATIENT
  Sex: Female

DRUGS (2)
  1. IBSRELA [Suspect]
     Active Substance: TENAPANOR HYDROCHLORIDE
     Indication: Irritable bowel syndrome
     Dosage: 50 MG, BID
     Route: 048
     Dates: start: 202507
  2. REGLAN [Concomitant]
     Active Substance: METOCLOPRAMIDE HYDROCHLORIDE
     Indication: Dyspepsia
     Dosage: UNK
     Route: 065

REACTIONS (2)
  - Nerve block [Recovered/Resolved]
  - Malaise [Recovered/Resolved]

NARRATIVE: CASE EVENT DATE: 20250101
